FAERS Safety Report 5214798-6 (Version None)
Quarter: 2007Q1

REPORT INFORMATION
  Report Type: 
  Country: None (occurrence: None)
  Receive Date: 20061113
  Receipt Date: 20051014
  Transmission Date: 20070707
  Serious: Yes (Hospitalization)
  Sender: FDA-Public Use
  Company Number: US-JNJFOC-20051003418

PATIENT
  Age: 84 Year
  Sex: Female

DRUGS (1)
  1. LEVAQUIN [Suspect]
     Indication: PNEUMONIA
     Dates: start: 20051012, end: 20051012

REACTIONS (4)
  - HALLUCINATION [None]
  - IRRITABILITY [None]
  - PARANOIA [None]
  - RASH ERYTHEMATOUS [None]
